FAERS Safety Report 4541699-9 (Version None)
Quarter: 2004Q4

REPORT INFORMATION
  Report Type: 
  Country: None (occurrence: None)
  Receive Date: 20041227
  Receipt Date: 20041220
  Transmission Date: 20050328
  Serious: Yes (Hospitalization, Other)
  Sender: FDA-Public Use
  Company Number: 210159

PATIENT
  Sex: Female

DRUGS (1)
  1. XOLAIR [Suspect]
     Indication: ASTHMA
     Dosage: 300 MG
     Dates: start: 20040701

REACTIONS (3)
  - ANAPHYLACTIC REACTION [None]
  - CHEST DISCOMFORT [None]
  - DRUG INEFFECTIVE [None]
